FAERS Safety Report 8099881-2 (Version None)
Quarter: 2012Q1

REPORT INFORMATION
  Report Type: 
  Country: None (occurrence: None)
  Receive Date: 20120129
  Receipt Date: 20111014
  Transmission Date: 20120608
  Serious: No
  Sender: FDA-Public Use
  Company Number: US-ABBOTT-11P-163-0862680-00

PATIENT
  Age: 25 Year
  Sex: Female

DRUGS (3)
  1. HUMIRA [Suspect]
     Indication: CROHN'S DISEASE
     Dates: start: 20111008
  2. PREVACID [Concomitant]
     Indication: PRODUCT USED FOR UNKNOWN INDICATION
     Dosage: PRN
     Route: 048
  3. TRI-LEGEST BIRTH CONTROL [Concomitant]
     Indication: CONTRACEPTION
     Route: 048

REACTIONS (8)
  - NAUSEA [None]
  - VOMITING [None]
  - EYE PAIN [None]
  - VERTIGO [None]
  - INJECTION SITE SWELLING [None]
  - ABNORMAL SENSATION IN EYE [None]
  - INJECTION SITE NODULE [None]
  - DIARRHOEA [None]
